FAERS Safety Report 14381068 (Version 1)
Quarter: 2018Q1

REPORT INFORMATION
  Report Type: Spontaneous
  Country: FR (occurrence: FR)
  Receive Date: 20180112
  Receipt Date: 20180112
  Transmission Date: 20180509
  Serious: Yes (Death, Other)
  Sender: FDA-Public Use
  Company Number: FR-FRESENIUS KABI-FK201800386

PATIENT
  Sex: Female

DRUGS (3)
  1. ROPIVACAINE (MANUFACTURER UNKNOWN) [Suspect]
     Active Substance: ROPIVACAINE
     Indication: SEDATIVE THERAPY
     Route: 008
  2. ROPIVACAINE (MANUFACTURER UNKNOWN) [Suspect]
     Active Substance: ROPIVACAINE
     Route: 008
  3. LOCAL ANAESTHETIC [Concomitant]
     Indication: INFILTRATION ANAESTHESIA

REACTIONS (4)
  - Agitation [Unknown]
  - Dysgeusia [Unknown]
  - Cardiac arrest [Fatal]
  - Maternal exposure during pregnancy [Unknown]
